FAERS Safety Report 4804011-3 (Version None)
Quarter: 2005Q3

REPORT INFORMATION
  Report Type: 
  Country: None (occurrence: None)
  Receive Date: 20050920
  Receipt Date: 20050801
  Transmission Date: 20060218
  Serious: No
  Sender: FDA-Public Use
  Company Number: US-YAMANOUCHI-YPA20050414

PATIENT
  Age: 54 Year
  Sex: Female
  Weight: 58.9676 kg

DRUGS (19)
  1. VESICARE [Suspect]
     Indication: INCONTINENCE
     Dosage: 10 MG QD PO
     Route: 048
     Dates: start: 20050726
  2. MORPHINE SO4 [Concomitant]
  3. MORPHINE INFUSION [Concomitant]
  4. LASIX [Concomitant]
  5. POTASSIUM [Concomitant]
  6. KEPPRA [Concomitant]
  7. TOPROL-XL [Concomitant]
  8. ESTRATEST [Concomitant]
  9. LEVOTHROID [Concomitant]
  10. PEPCID [Concomitant]
  11. ZANAFLEX [Concomitant]
  12. MODURETIC 5-50 [Concomitant]
  13. FERROUS SULFATE TAB [Concomitant]
  14. PHENERGAN ^AVENTIS PHARMA^ [Concomitant]
  15. NOVOLOG MIX [Concomitant]
  16. DOCUSATE [Concomitant]
  17. PERI-COLACE [Concomitant]
  18. NULEV [Concomitant]
  19. ENABLEX [Concomitant]

REACTIONS (4)
  - CONSTIPATION [None]
  - MIGRAINE [None]
  - NAUSEA [None]
  - URTICARIA [None]
